FAERS Safety Report 6742164-0 (Version None)
Quarter: 2010Q2

REPORT INFORMATION
  Report Type: 
  Country: None (occurrence: None)
  Receive Date: 20100526
  Receipt Date: 20100520
  Transmission Date: 20101027
  Serious: Yes (Other)
  Sender: FDA-Public Use
  Company Number: US-RB-009827-10

PATIENT
  Sex: Male

DRUGS (10)
  1. SUBUTEX [Suspect]
     Indication: DRUG DEPENDENCE
     Dosage: DOSE VARIES FROM 16 MG DOWN TO 5 MG
     Route: 064
     Dates: start: 20091101, end: 20100101
  2. SUBUTEX [Suspect]
     Route: 064
     Dates: start: 20100101
  3. SUBOXONE [Suspect]
     Indication: DRUG DEPENDENCE
     Dosage: UNKNOWN DOSING DETAILS
     Route: 064
  4. LAMICTAL [Concomitant]
     Indication: BIPOLAR DISORDER
     Route: 064
     Dates: start: 20091101, end: 20100301
  5. LAMICTAL [Concomitant]
     Route: 064
     Dates: start: 20100301, end: 20100514
  6. GEODON [Concomitant]
     Indication: BIPOLAR DISORDER
     Route: 064
     Dates: start: 20100201, end: 20100301
  7. GEODON [Concomitant]
     Dosage: DOSE CHANGED TO 40 MG IN AM AND 60 MG IN PM
     Route: 064
     Dates: start: 20100301, end: 20100514
  8. VISTARIL [Concomitant]
     Indication: BIPOLAR DISORDER
     Route: 064
     Dates: start: 20091201, end: 20100514
  9. ZOFRAN [Concomitant]
     Indication: NAUSEA
     Dosage: OTEHR DOSING INFORMATION UNKNOWN
     Route: 064
     Dates: start: 20100201, end: 20100514
  10. PRENATAL VITAMINS [Concomitant]
     Indication: PREGNANCY
     Dosage: TAKES ONE VITAMIN DAILY
     Route: 064
     Dates: start: 20091001, end: 20100514

REACTIONS (5)
  - DRUG EXPOSURE DURING PREGNANCY [None]
  - MATERNAL DRUGS AFFECTING FOETUS [None]
  - NEONATAL ASPIRATION [None]
  - NO ADVERSE EVENT [None]
  - TACHYPNOEA [None]
